FAERS Safety Report 14194488 (Version 1)
Quarter: 2017Q4

REPORT INFORMATION
  Report Type: Report from Study
  Country: DE (occurrence: DE)
  Receive Date: 20171116
  Receipt Date: 20171116
  Transmission Date: 20180321
  Serious: Yes (Death)
  Sender: FDA-Public Use
  Company Number: DE-ACCORD-061044

PATIENT
  Age: 65 Year
  Sex: Male

DRUGS (2)
  1. CISPLATIN. [Suspect]
     Active Substance: CISPLATIN
     Indication: ADENOCARCINOMA PANCREAS
     Dosage: 7.5 MG/M2 IN A 150 ML NACL 0.9%
  2. DOXORUBICIN [Suspect]
     Active Substance: DOXORUBICIN
     Indication: ADENOCARCINOMA PANCREAS
     Dosage: IN 50 ML NACL 0.9%

REACTIONS (4)
  - Off label use [Unknown]
  - Abdominal discomfort [Unknown]
  - Pain [Unknown]
  - Adhesion [Fatal]
